FAERS Safety Report 4895149-3 (Version None)
Quarter: 2006Q1

REPORT INFORMATION
  Report Type: 
  Country: None (occurrence: None)
  Receive Date: 20060130
  Receipt Date: 20050902
  Transmission Date: 20060701
  Serious: Yes (Other)
  Sender: FDA-Public Use
  Company Number: PHEH2005US09862

PATIENT
  Age: 77 Year
  Sex: Female
  Weight: 58.956 kg

DRUGS (3)
  1. COUMADIN [Concomitant]
  2. ZOLOFT [Concomitant]
  3. ZOMETA [Suspect]
     Indication: METASTASES TO BONE
     Dosage: 4MG QMO
     Route: 042
     Dates: end: 20041224

REACTIONS (12)
  - BONE DEBRIDEMENT [None]
  - BONE DISORDER [None]
  - BONE TRIMMING [None]
  - DENTAL CARIES [None]
  - DENTURE WEARER [None]
  - ERYTHEMA [None]
  - ORAL SOFT TISSUE DISORDER [None]
  - OSTEOMYELITIS [None]
  - SEQUESTRECTOMY [None]
  - TOOTH EXTRACTION [None]
  - TOOTH INFECTION [None]
  - TRAUMATIC ULCER [None]
